FAERS Safety Report 13429399 (Version 2)
Quarter: 2017Q2

REPORT INFORMATION
  Report Type: Spontaneous
  Country: JP (occurrence: JP)
  Receive Date: 20170411
  Receipt Date: 20170530
  Transmission Date: 20170830
  Serious: No
  Sender: FDA-Public Use
  Company Number: JP-TAKEDA-2017TJP007285

PATIENT
  Age: 82 Year
  Sex: Female

DRUGS (2)
  1. STOMIN A [Concomitant]
     Active Substance: NIACINAMIDE\PAPAVERINE HYDROCHLORIDE
     Dosage: UNK
     Route: 048
  2. ROZEREM [Suspect]
     Active Substance: RAMELTEON
     Indication: INITIAL INSOMNIA
     Dosage: 8 MG, UNK
     Route: 048
     Dates: start: 20170403, end: 20170403

REACTIONS (1)
  - Muscle spasms [Recovered/Resolved]

NARRATIVE: CASE EVENT DATE: 20170404
